FAERS Safety Report 6540567-0 (Version None)
Quarter: 2010Q1

REPORT INFORMATION
  Report Type: 
  Country: None (occurrence: None)
  Receive Date: 20100113
  Receipt Date: 20100104
  Transmission Date: 20100710
  Serious: Yes (Disabling)
  Sender: FDA-Public Use
  Company Number: 466916

PATIENT
  Age: 17 Year
  Sex: Female

DRUGS (4)
  1. VINCRISTINE [Suspect]
     Indication: HODGKIN'S DISEASE
     Dosage: 2 MG, INTRAVENOUS
     Route: 042
  2. ADRIAMYCIN PFS [Concomitant]
  3. BLEOMYCIN SULFATE [Concomitant]
  4. DACARBAZINE [Concomitant]

REACTIONS (2)
  - DRUG TOXICITY [None]
  - NEUROPATHY PERIPHERAL [None]
